FAERS Safety Report 7132362-9 (Version None)
Quarter: 2010Q4

REPORT INFORMATION
  Report Type: 
  Country: None (occurrence: None)
  Receive Date: 20101129
  Receipt Date: 20101129
  Transmission Date: 20110411
  Serious: Yes (Life-Threatening)
  Sender: FDA-Public Use
  Company Number: None

PATIENT
  Sex: Male
  Weight: 81.6475 kg

DRUGS (1)
  1. COREG CR [Suspect]
     Indication: ARRHYTHMIA
     Dosage: 40 MG 1 DAILY WAS 80 MG 1 DAILY
     Dates: end: 20101004

REACTIONS (3)
  - ASTHENIA [None]
  - DYSPNOEA [None]
  - GAIT DISTURBANCE [None]
